FAERS Safety Report 21086213 (Version 1)
Quarter: 2022Q3

REPORT INFORMATION
  Report Type: Spontaneous
  Country: CN (occurrence: None)
  Receive Date: 20220715
  Receipt Date: 20220715
  Transmission Date: 20221027
  Serious: Yes (Other)
  Sender: FDA-Public Use
  Company Number: CN-ROCHE-3139182

PATIENT
  Age: 58 Year
  Sex: Female

DRUGS (12)
  1. AVASTIN [Suspect]
     Active Substance: BEVACIZUMAB
     Indication: Ovarian cancer recurrent
     Route: 065
  2. GEMCITABINE [Concomitant]
     Active Substance: GEMCITABINE
     Indication: Ovarian cancer recurrent
     Dates: start: 20200729, end: 20201105
  3. DOCETAXEL [Concomitant]
     Active Substance: DOCETAXEL
     Indication: Ovarian cancer recurrent
     Dates: start: 20200729, end: 20201105
  4. DOXORUBICIN HYDROCHLORIDE [Concomitant]
     Active Substance: DOXORUBICIN HYDROCHLORIDE
     Indication: Ovarian cancer recurrent
     Dates: start: 20201127, end: 20210129
  5. IFOSFAMIDE [Concomitant]
     Active Substance: IFOSFAMIDE
     Indication: Ovarian cancer recurrent
     Dates: start: 20201127, end: 20210129
  6. CISPLATIN [Concomitant]
     Active Substance: CISPLATIN
     Indication: Ovarian cancer recurrent
     Dates: start: 20201127, end: 20210129
  7. PACLITAXEL [Concomitant]
     Active Substance: PACLITAXEL
     Indication: Ovarian cancer recurrent
     Dates: start: 20210528, end: 20210910
  8. PAMIPARIB [Concomitant]
     Active Substance: PAMIPARIB
     Indication: Ovarian cancer recurrent
     Dosage: PACLITAXEL FOR INJECTION (ALBUMIN BOUND) + PAMIPARIB
     Dates: start: 20210612, end: 20210709
  9. PAMIPARIB [Concomitant]
     Active Substance: PAMIPARIB
     Dosage: PACLITAXEL FOR INJECTION (ALBUMIN BOUND) + PAMIPARIB + BEVACIZUMAB
     Dates: start: 20210730, end: 20210910
  10. PAMIPARIB [Concomitant]
     Active Substance: PAMIPARIB
     Dosage: PAMIPARIB + BEVACIZUMAB
     Dates: end: 20211020
  11. PAMIPARIB [Concomitant]
     Active Substance: PAMIPARIB
     Dosage: PAMIPARIB + BEVACIZUMAB
     Dates: start: 20211022, end: 20211030
  12. PAMIPARIB [Concomitant]
     Active Substance: PAMIPARIB
     Dosage: PAMIPARIB + BEVACIZUMAB
     Dates: start: 20211030

REACTIONS (6)
  - Myelosuppression [Unknown]
  - Nausea [Unknown]
  - Vomiting [Unknown]
  - Abdominal pain [Unknown]
  - Mouth haemorrhage [Unknown]
  - Tongue haemorrhage [Unknown]

NARRATIVE: CASE EVENT DATE: 20210101
